FAERS Safety Report 9420385 (Version 1)
Quarter: 2013Q3

REPORT INFORMATION
  Report Type: Spontaneous
  Country: CA (occurrence: CA)
  Receive Date: 20130725
  Receipt Date: 20130725
  Transmission Date: 20140515
  Serious: Yes (Hospitalization)
  Sender: FDA-Public Use
  Company Number: CA-AMGEN-CANSP2013051555

PATIENT
  Age: 74 Year
  Sex: Female

DRUGS (8)
  1. ENBREL [Suspect]
     Indication: RHEUMATOID ARTHRITIS
     Dosage: 25 MG/ML, UNK
     Route: 065
  2. METOPROLOL [Concomitant]
     Dosage: 150 MG, UNK
  3. ASPIRIN [Concomitant]
     Dosage: UNK
  4. ZOCOR [Concomitant]
     Dosage: UNK
  5. AMITRIPTYLINE [Concomitant]
     Dosage: UNK
  6. TYLENOL EXTRA STRENGTH [Concomitant]
     Dosage: UNK
  7. VITALUX                            /01586901/ [Concomitant]
     Dosage: UNK
  8. COD LIVER OIL [Concomitant]
     Dosage: UNK

REACTIONS (4)
  - Cardiac disorder [Recovered/Resolved]
  - Nasopharyngitis [Recovered/Resolved]
  - Urinary tract infection [Recovered/Resolved]
  - Pneumonia [Recovered/Resolved]
